FAERS Safety Report 12320866 (Version 1)
Quarter: 2016Q2

REPORT INFORMATION
  Report Type: Spontaneous
  Country: US (occurrence: US)
  Receive Date: 20160429
  Receipt Date: 20160429
  Transmission Date: 20160815
  Serious: No
  Sender: FDA-Public Use
  Company Number: US-ROCHE-1632802

PATIENT
  Sex: Female
  Weight: 90.8 kg

DRUGS (1)
  1. ESBRIET [Suspect]
     Active Substance: PIRFENIDONE
     Indication: PULMONARY HYPERTENSION
     Dosage: 3 CAPS TID
     Route: 048

REACTIONS (2)
  - Abdominal discomfort [Unknown]
  - Dyspepsia [Unknown]
